FAERS Safety Report 8614124-6 (Version None)
Quarter: 2012Q3

REPORT INFORMATION
  Report Type: 
  Country: None (occurrence: None)
  Receive Date: 20120823
  Receipt Date: 20120808
  Transmission Date: 20120928
  Serious: Yes (Other)
  Sender: FDA-Public Use
  Company Number: US-MERCK-1208USA004171

PATIENT

DRUGS (4)
  1. PEG-INTRON [Suspect]
     Dosage: UNK
     Dates: start: 20120224, end: 20120527
  2. PEG-INTRON [Suspect]
     Indication: HEPATITIS C
     Dosage: UNK
     Dates: start: 20060101, end: 20061201
  3. REBETOL [Suspect]
     Indication: HEPATITIS C
     Dosage: UNK
     Dates: start: 20060101, end: 20061201
  4. REBETOL [Suspect]
     Dosage: UNK
     Dates: start: 20120224, end: 20120527

REACTIONS (1)
  - HYPOTHYROIDISM [None]
